FAERS Safety Report 13587490 (Version 1)
Quarter: 2017Q2

REPORT INFORMATION
  Report Type: Spontaneous
  Country: US (occurrence: US)
  Receive Date: 20170526
  Receipt Date: 20170526
  Transmission Date: 20170830
  Serious: Yes (Other)
  Sender: FDA-Public Use
  Company Number: None

PATIENT
  Age: 7 Year
  Sex: Male
  Weight: 35.1 kg

DRUGS (17)
  1. NEURO-5-HTP PLUS D [Concomitant]
  2. GLYCINE. [Concomitant]
     Active Substance: GLYCINE
  3. RISPERIDONE. [Concomitant]
     Active Substance: RISPERIDONE
  4. PROAIR HFA [Concomitant]
     Active Substance: ALBUTEROL SULFATE
  5. B2 [Concomitant]
  6. ADVAIR HFA [Concomitant]
     Active Substance: FLUTICASONE PROPIONATE\SALMETEROL XINAFOATE
  7. OMEGA PLUS [Concomitant]
  8. QUERCENTIN [Concomitant]
  9. ZAFIRLUSKAST [Concomitant]
  10. EPIPEN [Concomitant]
     Active Substance: EPINEPHRINE
  11. LITHIUM. [Concomitant]
     Active Substance: LITHIUM
  12. GUANFACINE. [Concomitant]
     Active Substance: GUANFACINE
  13. XOLAIR [Suspect]
     Active Substance: OMALIZUMAB
     Indication: ASTHMA
     Dosage: ?          OTHER FREQUENCY:2 WEEKS;?
     Route: 058
     Dates: start: 20170427, end: 20170515
  14. B12-2000 [Concomitant]
  15. MG CITRATE [Concomitant]
  16. MULTI VITAMIN [Concomitant]
     Active Substance: VITAMINS
  17. PHENITROPIC [Concomitant]

REACTIONS (5)
  - Mania [None]
  - Anxiety [None]
  - Psychomotor hyperactivity [None]
  - Aggression [None]
  - Insomnia [None]

NARRATIVE: CASE EVENT DATE: 20170427
